FAERS Safety Report 15929908 (Version 2)
Quarter: 2019Q2

REPORT INFORMATION
  Report Type: Spontaneous
  Country: BE (occurrence: BE)
  Receive Date: 20190206
  Receipt Date: 20190411
  Transmission Date: 20190711
  Serious: Yes (Death, Other)
  Sender: FDA-Public Use
  Company Number: BE-NOVOPROD-644654

PATIENT
  Age: 22 Year
  Sex: Male
  Weight: 43 kg

DRUGS (1)
  1. NORDITROPIN [Suspect]
     Active Substance: SOMATROPIN
     Indication: BODY HEIGHT BELOW NORMAL
     Dosage: 0.033-0.037 MG/KG/DAY
     Route: 065

REACTIONS (2)
  - Glioblastoma [Fatal]
  - Oligoastrocytoma [Recovered/Resolved]

NARRATIVE: CASE EVENT DATE: 20130530
